FAERS Safety Report 12694281 (Version 3)
Quarter: 2017Q1

REPORT INFORMATION
  Report Type: Spontaneous
  Country: US (occurrence: US)
  Receive Date: 20160829
  Receipt Date: 20170103
  Transmission Date: 20170428
  Serious: No
  Sender: FDA-Public Use
  Company Number: US-PFIZER INC-2016404527

PATIENT
  Age: 50 Year
  Sex: Female
  Weight: 88.44 kg

DRUGS (13)
  1. GABAPENTIN. [Suspect]
     Active Substance: GABAPENTIN
     Dosage: 300 MG, 1-2 CAPSULE AT BEDTIME
     Route: 048
  2. SYNTHROID [Concomitant]
     Active Substance: LEVOTHYROXINE SODIUM
     Dosage: 25 UG, 1 TABLET DAILY
     Route: 048
  3. DIVALPROEX SODIUM. [Concomitant]
     Active Substance: DIVALPROEX SODIUM
     Indication: SEIZURE
     Dosage: 500 MG, 1 TABLET TWICE DAILY
     Route: 048
  4. FLUDROCORTISONE ACETATE. [Concomitant]
     Active Substance: FLUDROCORTISONE ACETATE
     Indication: HYPOTENSION
     Dosage: 0.1 MG, 1 TABLET DAILY
     Route: 048
  5. SUMATRIPTAN SUCCINATE. [Concomitant]
     Active Substance: SUMATRIPTAN SUCCINATE
     Dosage: 50 MG, 1 TABLET AS NEEDED ONE TIME AND MAY TAKE ANOTHER IN 30 MIN IF SYMPTOMS DO NOT RESOLVE
     Route: 048
  6. LEVOTHYROXINE SODIUM. [Concomitant]
     Active Substance: LEVOTHYROXINE SODIUM
     Indication: HYPOTHYROIDISM
     Dosage: 25 UG, 1 TABLET DAILY
     Route: 048
  7. PROAIR HFA [Concomitant]
     Active Substance: ALBUTEROL SULFATE
     Dosage: 108 UG (90 UG BASE), 2 PUFFS AS NEEDED, INHALATION, EVERY 4 HOURS
     Route: 050
  8. MELOXICAM. [Concomitant]
     Active Substance: MELOXICAM
     Indication: FIBROMYALGIA
     Dosage: 7.5 MG, 1 TABLET DAILY
     Route: 048
  9. BUSPIRONE HCL [Concomitant]
     Active Substance: BUSPIRONE HYDROCHLORIDE
     Dosage: 10 MG, 1 TABLET EVERY DAY TO TWICE DAILY (30 DAYS)
  10. EXCEDRIN MIGRAINE [Concomitant]
     Active Substance: ACETAMINOPHEN\ASPIRIN\CAFFEINE
     Dosage: 250-250-65 MG, 2 TABLETS AS NEEDED, EVERY 6 HOURS
     Route: 048
  11. GABAPENTIN. [Suspect]
     Active Substance: GABAPENTIN
     Indication: FIBROMYALGIA
     Dosage: 300 MG, 2X/DAY
  12. OXYBUTYNIN CHLORIDE. [Concomitant]
     Active Substance: OXYBUTYNIN CHLORIDE
     Dosage: 5 MG, 1 TABLET ONCE A DAY
     Route: 048
  13. ESCITALOPRAM OXALATE. [Concomitant]
     Active Substance: ESCITALOPRAM OXALATE
     Dosage: 20 MG, 1 TABLET DAILY
     Route: 048

REACTIONS (8)
  - Joint swelling [Unknown]
  - Pain in extremity [Unknown]
  - Fall [Unknown]
  - Joint range of motion decreased [Unknown]
  - Arthralgia [Unknown]
  - Joint crepitation [Unknown]
  - Drug ineffective for unapproved indication [Unknown]
  - Meniscus injury [Unknown]
